FAERS Safety Report 8608035 (Version 4)
Quarter: 2014Q2

REPORT INFORMATION
  Report Type: Spontaneous
  Country: US (occurrence: US)
  Receive Date: 20120611
  Receipt Date: 20140507
  Transmission Date: 20141212
  Serious: Yes (Hospitalization, Disabling)
  Sender: FDA-Public Use
  Company Number: US-ASTRAZENECA-2012SE35819

PATIENT
  Age: 51 Year
  Sex: Female
  Weight: 95.3 kg

DRUGS (20)
  1. NEXIUM [Suspect]
     Indication: BARRETT^S OESOPHAGUS
     Dosage: ONE EVERY DAY
     Route: 048
     Dates: start: 2006, end: 2010
  2. NEXIUM [Suspect]
     Indication: HERNIA
     Dosage: ONE EVERY DAY
     Route: 048
     Dates: start: 2006, end: 2010
  3. NEXIUM [Suspect]
     Indication: BARRETT^S OESOPHAGUS
     Route: 048
     Dates: start: 20100429
  4. NEXIUM [Suspect]
     Indication: HERNIA
     Route: 048
     Dates: start: 20100429
  5. NEXIUM [Suspect]
     Indication: BARRETT^S OESOPHAGUS
     Dosage: TWO EVERY DAY
     Route: 048
     Dates: start: 2010, end: 2012
  6. NEXIUM [Suspect]
     Indication: HERNIA
     Dosage: TWO EVERY DAY
     Route: 048
     Dates: start: 2010, end: 2012
  7. PRILOSEC [Suspect]
     Route: 048
     Dates: start: 1994, end: 2006
  8. PREVACID [Suspect]
     Route: 065
     Dates: start: 1994, end: 2006
  9. TUMS [Concomitant]
     Dates: start: 1985, end: 1990
  10. ALKA SELTZER [Concomitant]
     Dates: start: 1985, end: 1990
  11. MILK OF MAGNESIA [Concomitant]
     Dates: start: 1985, end: 1990
  12. PEPTO BISMOL [Concomitant]
     Dates: start: 1985, end: 1990
  13. ROLAIDS [Concomitant]
     Dates: start: 1985, end: 1990
  14. MYLANTA [Concomitant]
     Dates: start: 1985, end: 1990
  15. CRESTOR [Concomitant]
     Indication: BLOOD CHOLESTEROL INCREASED
  16. DETROL [Concomitant]
     Indication: BLADDER SPASM
  17. EVISTA [Concomitant]
     Indication: BONE DENSITY DECREASED
  18. HYDROCODONE [Concomitant]
     Indication: PAIN
  19. OXAPROZIN [Concomitant]
     Indication: INFLAMMATION
  20. PAROXETINE [Concomitant]
     Indication: DEPRESSION

REACTIONS (10)
  - Wrist fracture [Unknown]
  - Intervertebral disc degeneration [Unknown]
  - Osteoporosis [Unknown]
  - Bone density decreased [Unknown]
  - Ankle fracture [Unknown]
  - Arthritis [Unknown]
  - Rheumatoid arthritis [Unknown]
  - Arthralgia [Unknown]
  - Depression [Unknown]
  - Foot fracture [Unknown]
